FAERS Safety Report 11323967 (Version 2)
Quarter: 2015Q3

REPORT INFORMATION
  Report Type: Report from Study
  Country: NL (occurrence: NL)
  Receive Date: 20150730
  Receipt Date: 20150901
  Transmission Date: 20151125
  Serious: Yes (Hospitalization, Other)
  Sender: FDA-Public Use
  Company Number: NL-BEH-2015051404

PATIENT
  Age: 23 Year
  Sex: Female

DRUGS (5)
  1. HIZENTRA [Suspect]
     Active Substance: HUMAN IMMUNOGLOBULIN G
     Dosage: INFUSION RATE: 1 H 30 ML/H, 15 MIN 40 ML/H
     Route: 058
     Dates: start: 20150602, end: 20150602
  2. HIZENTRA [Suspect]
     Active Substance: HUMAN IMMUNOGLOBULIN G
     Dosage: INFUSION RATE: 40 ML/H
     Route: 058
     Dates: start: 20150610, end: 20150610
  3. HIZENTRA [Suspect]
     Active Substance: HUMAN IMMUNOGLOBULIN G
     Dosage: INFUSION RATE: 40 ML/H
     Route: 058
     Dates: start: 20150615, end: 20150615
  4. HIZENTRA [Suspect]
     Active Substance: HUMAN IMMUNOGLOBULIN G
     Dosage: INFUSION RATE: 20 ML/H - 30 ML/H
     Route: 058
     Dates: start: 20150521, end: 20150521
  5. HIZENTRA [Suspect]
     Active Substance: HUMAN IMMUNOGLOBULIN G
     Indication: IMMUNODEFICIENCY COMMON VARIABLE
     Dosage: INFUSION RATE: 30 MIN 30 ML/H, 45 MIN 40 ML/H
     Route: 058
     Dates: start: 20150528, end: 20150528

REACTIONS (32)
  - Hypersensitivity [Unknown]
  - Fluid retention [Unknown]
  - Fatigue [Unknown]
  - Headache [Recovered/Resolved]
  - Pruritus [Unknown]
  - Malaise [Unknown]
  - Back pain [Unknown]
  - Laryngitis [Unknown]
  - Pyrexia [Unknown]
  - Injection site swelling [Unknown]
  - Injection site discolouration [Unknown]
  - Injection site discolouration [Unknown]
  - Injection site pruritus [Unknown]
  - Injection site swelling [Unknown]
  - Injection site erythema [Recovered/Resolved]
  - Injection site urticaria [Unknown]
  - Injection site erythema [Recovered/Resolved]
  - Injection site swelling [Unknown]
  - Injection site pruritus [Unknown]
  - Fatigue [Unknown]
  - Feeling cold [Unknown]
  - Fatigue [Recovered/Resolved]
  - Back pain [Unknown]
  - Injection site urticaria [Unknown]
  - Back pain [Unknown]
  - Injection site induration [Unknown]
  - Injection site pruritus [Unknown]
  - Fatigue [Unknown]
  - Injection site induration [Unknown]
  - Injection site pruritus [Unknown]
  - Peripheral coldness [Unknown]
  - Injection site swelling [Unknown]

NARRATIVE: CASE EVENT DATE: 20150521
